FAERS Safety Report 25453503 (Version 1)
Quarter: 2025Q2

REPORT INFORMATION
  Report Type: Report from Study
  Country: US (occurrence: US)
  Receive Date: 20250619
  Receipt Date: 20250619
  Transmission Date: 20250717
  Serious: Yes (Hospitalization)
  Sender: ABBVIE
  Company Number: US-ABBVIE-6326116

PATIENT
  Sex: Male

DRUGS (1)
  1. HUMIRA [Suspect]
     Active Substance: ADALIMUMAB
     Indication: Psoriasis
     Route: 058

REACTIONS (6)
  - Calculus bladder [Unknown]
  - Yellow skin [Not Recovered/Not Resolved]
  - Ocular icterus [Not Recovered/Not Resolved]
  - Weight decreased [Unknown]
  - Fatigue [Unknown]
  - Asthenia [Unknown]
